FAERS Safety Report 19759261 (Version 1)
Quarter: 2021Q3

REPORT INFORMATION
  Report Type: Spontaneous
  Country: US (occurrence: US)
  Receive Date: 20210829
  Receipt Date: 20210829
  Transmission Date: 20211014
  Serious: No
  Sender: FDA-Public Use
  Company Number: US-AMGEN INC.-USASP2021130047

PATIENT
  Age: 64 Year
  Sex: Female

DRUGS (2)
  1. AIMOVIG [Suspect]
     Active Substance: ERENUMAB-AOOE
     Indication: MIGRAINE PROPHYLAXIS
     Dosage: 70 MILLIGRAM, QMO
     Route: 065
  2. COVID?19 VACCINE [Concomitant]
     Dosage: UNK

REACTIONS (7)
  - Injection site reaction [Recovered/Resolved]
  - Muscle spasms [Not Recovered/Not Resolved]
  - Constipation [Unknown]
  - Wrong technique in product usage process [Unknown]
  - Cardiac disorder [Unknown]
  - Osteoporosis [Unknown]
  - Hypotension [Recovering/Resolving]

NARRATIVE: CASE EVENT DATE: 20210820
